FAERS Safety Report 17063962 (Version 2)
Quarter: 2019Q4

REPORT INFORMATION
  Report Type: Spontaneous
  Country: US (occurrence: US)
  Receive Date: 20191122
  Receipt Date: 20191218
  Transmission Date: 20200122
  Serious: Yes (Other)
  Sender: FDA-Public Use
  Company Number: US-NOVOPROD-696843

PATIENT
  Age: 55 Year
  Sex: Female

DRUGS (1)
  1. OZEMPIC [Suspect]
     Active Substance: SEMAGLUTIDE
     Indication: TYPE 2 DIABETES MELLITUS
     Dosage: 1 MG
     Route: 058
     Dates: start: 201906, end: 201911

REACTIONS (2)
  - Blindness [Not Recovered/Not Resolved]
  - Optic ischaemic neuropathy [Unknown]

NARRATIVE: CASE EVENT DATE: 2019
